FAERS Safety Report 14382830 (Version 2)
Quarter: 2018Q2

REPORT INFORMATION
  Report Type: Spontaneous
  Country: US (occurrence: US)
  Receive Date: 20180113
  Receipt Date: 20180611
  Transmission Date: 20180711
  Serious: Yes (Other)
  Sender: FDA-Public Use
  Company Number: US-ASTRAZENECA-2018SE03479

PATIENT
  Age: 820 Month
  Sex: Male
  Weight: 159.2 kg

DRUGS (29)
  1. LANTUS [Concomitant]
     Active Substance: INSULIN GLARGINE
  2. COUMADINE [Concomitant]
     Active Substance: WARFARIN SODIUM
  3. GABAPENTIN. [Concomitant]
     Active Substance: GABAPENTIN
  4. ZOLPIDEM TARTRATE. [Concomitant]
     Active Substance: ZOLPIDEM TARTRATE
  5. NEXIUM [Suspect]
     Active Substance: ESOMEPRAZOLE MAGNESIUM
     Indication: GASTROOESOPHAGEAL REFLUX DISEASE
     Route: 048
     Dates: start: 2011, end: 2017
  6. HUMALOG [Concomitant]
     Active Substance: INSULIN LISPRO
  7. OXYBUTIN [Concomitant]
     Active Substance: OXYBUTYNIN
  8. NEXIUM [Suspect]
     Active Substance: ESOMEPRAZOLE MAGNESIUM
     Indication: GASTROOESOPHAGEAL REFLUX DISEASE
     Route: 048
     Dates: start: 201504, end: 201603
  9. KLOR-CON [Concomitant]
     Active Substance: POTASSIUM CHLORIDE
  10. METOPROLOL. [Concomitant]
     Active Substance: METOPROLOL
  11. TAMSULOSIN HYDROCHLORIDE. [Concomitant]
     Active Substance: TAMSULOSIN HYDROCHLORIDE
  12. FEXOFENADINE [Concomitant]
     Active Substance: FEXOFENADINE\FEXOFENADINE HYDROCHLORIDE
  13. WARFARIN [Concomitant]
     Active Substance: WARFARIN
  14. ROSUVASTATIN. [Concomitant]
     Active Substance: ROSUVASTATIN
  15. NEXIUM [Suspect]
     Active Substance: ESOMEPRAZOLE MAGNESIUM
     Indication: GASTROOESOPHAGEAL REFLUX DISEASE
     Route: 048
     Dates: start: 201109, end: 201512
  16. CALCITRIOL. [Concomitant]
     Active Substance: CALCITRIOL
  17. FUROSEMIDE. [Concomitant]
     Active Substance: FUROSEMIDE
  18. NOVOLOG [Concomitant]
     Active Substance: INSULIN ASPART
  19. QUINAPRIL. [Concomitant]
     Active Substance: QUINAPRIL
  20. CARVEDILOL. [Concomitant]
     Active Substance: CARVEDILOL
  21. CRESTOR [Concomitant]
     Active Substance: ROSUVASTATIN CALCIUM
  22. DIOVAN [Concomitant]
     Active Substance: VALSARTAN
  23. POLYGLYCOLIC ACID [Concomitant]
     Active Substance: POLYGLYCOLIC ACID
  24. POTASSIUM CHLORIDE. [Concomitant]
     Active Substance: POTASSIUM CHLORIDE
  25. HYDROCODONE [Concomitant]
     Active Substance: HYDROCODONE
  26. TRAMADOL. [Concomitant]
     Active Substance: TRAMADOL
  27. FUROSEMIDE. [Concomitant]
     Active Substance: FUROSEMIDE
  28. MONTELUKAST [Concomitant]
     Active Substance: MONTELUKAST SODIUM
  29. FINASTERIDE. [Concomitant]
     Active Substance: FINASTERIDE

REACTIONS (17)
  - Chronic left ventricular failure [Unknown]
  - Sepsis [Unknown]
  - Cardiac failure congestive [Unknown]
  - Myocardial infarction [Unknown]
  - Kidney infection [Unknown]
  - Nephrolithiasis [Unknown]
  - Neoplasm malignant [Unknown]
  - Hypokalaemia [Unknown]
  - Urinary tract infection [Unknown]
  - Peripheral vascular disorder [Unknown]
  - Hypertension [Unknown]
  - Chronic kidney disease [Unknown]
  - Renal injury [Unknown]
  - Atrial fibrillation [Unknown]
  - Diabetic nephropathy [Unknown]
  - Coronary artery disease [Unknown]
  - Obesity [Unknown]

NARRATIVE: CASE EVENT DATE: 201305
